FAERS Safety Report 14408406 (Version 8)
Quarter: 2019Q4

REPORT INFORMATION
  Report Type: Spontaneous
  Country: JP (occurrence: JP)
  Receive Date: 20180118
  Receipt Date: 20191022
  Transmission Date: 20200122
  Serious: Yes (Death, Life-Threatening, Hospitalization, Other)
  Sender: FDA-Public Use
  Company Number: JP-AMGEN-JPNSP2018007075

PATIENT
  Age: 62 Year
  Sex: Female
  Weight: 59 kg

DRUGS (10)
  1. TEPRENONE [Concomitant]
     Active Substance: TEPRENONE
     Indication: PROPHYLAXIS AGAINST GASTROINTESTINAL ULCER
     Dosage: 50 MG, QD
     Route: 048
     Dates: start: 20180114, end: 20180115
  2. MIYA-BM [Concomitant]
     Active Substance: CLOSTRIDIUM BUTYRICUM SPORES STRAIN M-55
     Indication: GASTROINTESTINAL DISORDER
     Dosage: 1 G, TID
     Route: 048
     Dates: start: 20180114, end: 20180115
  3. METOCLOPRAMIDE. [Concomitant]
     Active Substance: METOCLOPRAMIDE
     Indication: PROPHYLAXIS OF NAUSEA AND VOMITING
     Dosage: 5 MG, QD
     Route: 048
     Dates: start: 20180114, end: 20180115
  4. 5-FU [FLUOROURACIL] [Concomitant]
     Active Substance: FLUOROURACIL
     Indication: OESOPHAGEAL CARCINOMA
     Dosage: UNK
     Route: 041
  5. DOCETAXEL. [Concomitant]
     Active Substance: DOCETAXEL
     Dosage: UNK
     Route: 041
  6. G-LASTA [Suspect]
     Active Substance: PEGFILGRASTIM
     Indication: COLONY STIMULATING FACTOR THERAPY
     Dosage: 3.6 MILLIGRAM, QD
     Route: 058
     Dates: start: 20180115, end: 20180115
  7. DOCETAXEL. [Concomitant]
     Active Substance: DOCETAXEL
     Indication: OESOPHAGEAL CARCINOMA
     Dosage: UNK
     Route: 041
  8. CISPLATIN. [Concomitant]
     Active Substance: CISPLATIN
     Indication: OESOPHAGEAL CARCINOMA
     Dosage: UNK
     Route: 041
  9. LEVOFLOXACIN. [Concomitant]
     Active Substance: LEVOFLOXACIN
     Indication: INFECTION
     Dosage: 500 MG, QD
     Route: 048
     Dates: start: 20180114, end: 20180115
  10. LOXOPROFEN [Concomitant]
     Active Substance: LOXOPROFEN
     Indication: ANTIPYRESIS
     Dosage: 60 MG, QD
     Route: 048
     Dates: start: 20180114, end: 20180115

REACTIONS (2)
  - Anaphylactic shock [Recovered/Resolved]
  - Myocardial infarction [Fatal]

NARRATIVE: CASE EVENT DATE: 20180115
